FAERS Safety Report 8350066-1 (Version None)
Quarter: 2012Q2

REPORT INFORMATION
  Report Type: 
  Country: None (occurrence: None)
  Receive Date: 20120510
  Receipt Date: 20120508
  Transmission Date: 20120825
  Serious: No
  Sender: FDA-Public Use
  Company Number: US-PFIZER INC-2012112283

PATIENT
  Sex: Female
  Weight: 91 kg

DRUGS (2)
  1. XANAX [Suspect]
     Dosage: UNK
     Dates: start: 20010101, end: 20120401
  2. CYMBALTA [Concomitant]
     Indication: ARTHROPATHY
     Dosage: UNK

REACTIONS (10)
  - WITHDRAWAL SYNDROME [None]
  - AGITATION [None]
  - HYPERHIDROSIS [None]
  - VERTIGO [None]
  - MUSCLE FATIGUE [None]
  - DIZZINESS [None]
  - ACTIVITIES OF DAILY LIVING IMPAIRED [None]
  - TREMOR [None]
  - ASTHENIA [None]
  - NAUSEA [None]
